FAERS Safety Report 9791511 (Version 1)
Quarter: 2014Q1

REPORT INFORMATION
  Report Type: Spontaneous
  Country: CA (occurrence: CA)
  Receive Date: 20140101
  Receipt Date: 20140101
  Transmission Date: 20141002
  Serious: Yes (Other)
  Sender: FDA-Public Use
  Company Number: PHHY2013CA152447

PATIENT
  Sex: Male

DRUGS (4)
  1. METHOTREXATE [Suspect]
     Dosage: (MATERNAL DOSE: 5 MG, QW)
     Route: 064
  2. FOLIC ACID [Suspect]
     Route: 064
  3. MEPREDNISONE [Suspect]
     Route: 064
  4. BUFLOMEDIL [Suspect]
     Route: 064

REACTIONS (2)
  - Low birth weight baby [Unknown]
  - Foetal exposure during pregnancy [Unknown]
